FAERS Safety Report 11670512 (Version 2)
Quarter: 2015Q4

REPORT INFORMATION
  Report Type: Spontaneous
  Country: US (occurrence: US)
  Receive Date: 20151027
  Receipt Date: 20151104
  Transmission Date: 20160304
  Serious: No
  Sender: FDA-Public Use
  Company Number: US-ELI_LILLY_AND_COMPANY-US200912005742

PATIENT
  Age: 74 Year
  Sex: Female

DRUGS (4)
  1. FORTEO [Suspect]
     Active Substance: TERIPARATIDE
     Indication: OSTEOPOROSIS
     Dosage: 20 UG, DAILY (1/D)
     Route: 065
     Dates: start: 20091130, end: 20091224
  2. FORTEO [Suspect]
     Active Substance: TERIPARATIDE
     Dosage: 20 UG, QD
     Route: 065
     Dates: start: 20110516
  3. DILTIAZEM [Concomitant]
     Active Substance: DILTIAZEM
     Dosage: 120 MG, DAILY (1/D)
  4. TOBRADEX [Concomitant]
     Active Substance: DEXAMETHASONE\TOBRAMYCIN
     Indication: DRY EYE

REACTIONS (13)
  - Heart rate increased [Recovered/Resolved]
  - Heart rate increased [Unknown]
  - Palpitations [Unknown]
  - Muscular weakness [Unknown]
  - Feeling abnormal [Unknown]
  - Heart rate irregular [Unknown]
  - Extrasystoles [Unknown]
  - Anxiety [Unknown]
  - Sleep disorder due to a general medical condition [Unknown]
  - Dyskinesia [Unknown]
  - Respiratory rate increased [Recovering/Resolving]
  - Mental disorder [Unknown]
  - Peripheral swelling [Unknown]

NARRATIVE: CASE EVENT DATE: 20091224
